FAERS Safety Report 19889479 (Version 1)
Quarter: 2021Q3

REPORT INFORMATION
  Report Type: Report from Study
  Country: DE (occurrence: DE)
  Receive Date: 20210927
  Receipt Date: 20210927
  Transmission Date: 20211014
  Serious: Yes (Other)
  Sender: FDA-Public Use
  Company Number: DE-MYLANLABS-2021M1065496

PATIENT
  Age: 71 Year
  Sex: Female

DRUGS (11)
  1. PEGFILGRASTIM [Suspect]
     Active Substance: PEGFILGRASTIM
     Indication: PRODUCT USED FOR UNKNOWN INDICATION
     Dosage: UNK
  2. GEMCITABINE. [Suspect]
     Active Substance: GEMCITABINE
     Dosage: 854 MILLIGRAM
     Route: 042
     Dates: start: 20200407, end: 20200407
  3. ATEZOLIZUMAB. [Suspect]
     Active Substance: ATEZOLIZUMAB
     Indication: CHEMOTHERAPY
     Dosage: 840 MILLIGRAM
     Route: 042
     Dates: start: 20200421, end: 20200421
  4. RANITIDINE. [Concomitant]
     Active Substance: RANITIDINE
     Dosage: 1 VIAL
     Route: 042
  5. NETUPITANT [Concomitant]
     Active Substance: NETUPITANT
     Dosage: STRENGTH: 300 MG
     Route: 048
  6. DEXAMETHASONE. [Concomitant]
     Active Substance: DEXAMETHASONE
     Dosage: STRNGTH:  8 MG
     Route: 042
  7. CLEMASTINE [Concomitant]
     Active Substance: CLEMASTINE
     Dosage: 1 VIAL
     Route: 042
  8. CARBOPLATIN. [Suspect]
     Active Substance: CARBOPLATIN
     Indication: CHEMOTHERAPY
     Dosage: 206 MILLIGRAM
     Route: 042
     Dates: start: 20200421, end: 20200421
  9. GEMCITABINE. [Suspect]
     Active Substance: GEMCITABINE
     Dosage: 854 MILLIGRAM
     Route: 042
     Dates: start: 20200310, end: 20200310
  10. CARBOPLATIN. [Suspect]
     Active Substance: CARBOPLATIN
     Dosage: 243 MILLIGRAM
     Route: 042
     Dates: start: 20200407, end: 20200407
  11. GEMCITABINE. [Suspect]
     Active Substance: GEMCITABINE
     Indication: CHEMOTHERAPY
     Dosage: 854 MILLIGRAM
     Route: 042
     Dates: start: 20200421, end: 20200421

REACTIONS (5)
  - Constipation [Unknown]
  - Blood parathyroid hormone increased [Unknown]
  - Fatigue [Unknown]
  - Anaemia [Unknown]
  - Hypocalcaemia [Unknown]

NARRATIVE: CASE EVENT DATE: 20200310
